FAERS Safety Report 12950621 (Version 1)
Quarter: 2016Q4

REPORT INFORMATION
  Report Type: Spontaneous
  Country: US (occurrence: US)
  Receive Date: 20161117
  Receipt Date: 20161117
  Transmission Date: 20170207
  Serious: Yes (Hospitalization)
  Sender: FDA-Public Use
  Company Number: None

PATIENT
  Age: 69 Year
  Sex: Male

DRUGS (1)
  1. HUMIRA [Suspect]
     Active Substance: ADALIMUMAB
     Indication: CROHN^S DISEASE
     Dosage: 40MG EVERY 10 DAYS SUBCUTANEOUSLY
     Route: 058
     Dates: start: 20110301

REACTIONS (2)
  - Blood cortisol decreased [None]
  - Drug dose omission [None]

NARRATIVE: CASE EVENT DATE: 20161107
